FAERS Safety Report 23868994 (Version 2)
Quarter: 2024Q2

REPORT INFORMATION
  Report Type: Spontaneous
  Country: CN (occurrence: CN)
  Receive Date: 20240517
  Receipt Date: 20240610
  Transmission Date: 20240716
  Serious: Yes (Hospitalization, Other)
  Sender: FDA-Public Use
  Company Number: CN-JNJFOC-20240524338

PATIENT
  Age: 58 Year
  Sex: Male

DRUGS (3)
  1. VELCADE [Suspect]
     Active Substance: BORTEZOMIB
     Indication: Plasma cell myeloma
     Dosage: 2.5 MILLIGRAM, 1/WEEK
     Route: 065
     Dates: start: 202209
  2. DEXAMETHASONE [Suspect]
     Active Substance: DEXAMETHASONE
     Indication: Plasma cell myeloma
     Dosage: 15 MILLIGRAM
     Route: 065
     Dates: start: 202209
  3. CYCLOPHOSPHAMIDE [Suspect]
     Active Substance: CYCLOPHOSPHAMIDE
     Indication: Plasma cell myeloma
     Dosage: 4 DOSAGE FORM
     Route: 065
     Dates: start: 202209

REACTIONS (6)
  - Myelosuppression [Unknown]
  - Granulocytopenia [Unknown]
  - Hypoxia [Unknown]
  - Chronic kidney disease [Unknown]
  - Pneumonia [Unknown]
  - Anaemia [Unknown]
